APPROVED DRUG PRODUCT: VEETIDS '125'
Active Ingredient: PENICILLIN V POTASSIUM
Strength: EQ 125MG BASE/5ML
Dosage Form/Route: FOR SOLUTION;ORAL
Application: A061206 | Product #001
Applicant: APOTHECON SUB BRISTOL MYERS SQUIBB CO
Approved: Approved Prior to Jan 1, 1982 | RLD: No | RS: No | Type: DISCN